FAERS Safety Report 5907170-4 (Version None)
Quarter: 2008Q4

REPORT INFORMATION
  Report Type: 
  Country: None (occurrence: None)
  Receive Date: 20081003
  Receipt Date: 20080930
  Transmission Date: 20090506
  Serious: Yes (Life-Threatening, Hospitalization)
  Sender: FDA-Public Use
  Company Number: JP-JNJFOC-20080601779

PATIENT
  Sex: Male
  Weight: 66 kg

DRUGS (16)
  1. FENTANYL [Suspect]
     Indication: PAIN
     Route: 062
     Dates: start: 20080603, end: 20080605
  2. FENTANYL [Suspect]
     Indication: CANCER PAIN
     Route: 062
     Dates: start: 20080603, end: 20080605
  3. FENTANYL [Suspect]
     Route: 062
  4. FENTANYL [Suspect]
     Route: 062
  5. NEUTROGIN [Concomitant]
     Indication: NEUTROPENIA
     Route: 058
  6. SOLDEM 3A [Concomitant]
     Indication: MINERAL SUPPLEMENTATION
     Route: 041
  7. NOVAMIN [Concomitant]
     Indication: VOMITING
     Route: 048
  8. PRIMPERAN TAB [Concomitant]
     Indication: VOMITING
     Route: 048
  9. GASTER D [Concomitant]
     Indication: GASTRITIS PROPHYLAXIS
     Route: 048
  10. SELBEX [Concomitant]
     Indication: GASTRITIS PROPHYLAXIS
     Route: 048
  11. ZYLORIC [Concomitant]
     Indication: HYPERURICAEMIA
     Route: 048
  12. LENDORMIN [Concomitant]
     Indication: INSOMNIA
     Route: 048
  13. MUCODYNE [Concomitant]
     Indication: PRODUCTIVE COUGH
     Route: 048
  14. DASEN [Concomitant]
     Indication: PRODUCTIVE COUGH
     Route: 048
  15. LOXOPROFEN [Concomitant]
     Indication: CANCER PAIN
     Route: 048
  16. MAGLAX [Concomitant]
     Indication: CONSTIPATION
     Route: 048

REACTIONS (1)
  - ASPIRATION [None]
